FAERS Safety Report 11968269 (Version 2)
Quarter: 2016Q1

REPORT INFORMATION
  Report Type: Spontaneous
  Country: GB (occurrence: GB)
  Receive Date: 20160127
  Receipt Date: 20160329
  Transmission Date: 20160526
  Serious: Yes (Other)
  Sender: FDA-Public Use
  Company Number: GB-009507513-1601GBR008401

PATIENT
  Age: 67 Year
  Sex: Female
  Weight: 52 kg

DRUGS (5)
  1. CYANOCOBALAMIN. [Concomitant]
     Active Substance: CYANOCOBALAMIN
     Indication: PERNICIOUS ANAEMIA
     Dosage: PREVIOUSLY ONCE EVERY 12 WEEKS.
  2. EZETROL [Suspect]
     Active Substance: EZETIMIBE
     Indication: TYPE IIA HYPERLIPIDAEMIA
     Dosage: 10 MG, ONCE DAILY (QD)
     Route: 048
     Dates: start: 2010, end: 20151007
  3. ROSUVASTATIN [Suspect]
     Active Substance: ROSUVASTATIN
     Dosage: 2.4 MG ON ALTERNATE DAYS
     Route: 048
     Dates: start: 2010, end: 20150926
  4. CLOPIDOGREL [Concomitant]
     Active Substance: CLOPIDOGREL BISULFATE
     Dates: start: 2013
  5. ROSUVASTATIN [Suspect]
     Active Substance: ROSUVASTATIN
     Indication: TYPE IIA HYPERLIPIDAEMIA
     Dosage: 5 MG ON ALTERNATE DAYS
     Route: 048
     Dates: start: 2010, end: 20150926

REACTIONS (21)
  - Nasal congestion [Not Recovered/Not Resolved]
  - Visual field defect [Recovered/Resolved]
  - Trigger finger [Recovered/Resolved]
  - Irritability [Recovered/Resolved]
  - Body temperature fluctuation [Recovering/Resolving]
  - Grip strength decreased [Recovered/Resolved]
  - Balance disorder [Recovered/Resolved]
  - Palpitations [Recovered/Resolved]
  - Asthenia [Recovered/Resolved]
  - Rhinorrhoea [Not Recovered/Not Resolved]
  - Tremor [Recovered/Resolved]
  - Abnormal loss of weight [Unknown]
  - Diplopia [Recovering/Resolving]
  - Visual impairment [Recovering/Resolving]
  - Muscle spasms [Recovering/Resolving]
  - Vision blurred [Recovered/Resolved]
  - Muscle atrophy [Unknown]
  - Memory impairment [Recovering/Resolving]
  - Retinal oedema [Recovered/Resolved with Sequelae]
  - Cerebrovascular accident [Recovered/Resolved]
  - Decreased appetite [Unknown]

NARRATIVE: CASE EVENT DATE: 2010
